FAERS Safety Report 10503575 (Version 1)
Quarter: 2014Q4

REPORT INFORMATION
  Report Type: Spontaneous
  Country: US (occurrence: None)
  Receive Date: 20141007
  Receipt Date: 20141007
  Transmission Date: 20150528
  Serious: No
  Sender: FDA-Public Use
  Company Number: None

PATIENT
  Age: 53 Year
  Sex: Male
  Weight: 90.72 kg

DRUGS (2)
  1. ORGANIC VITAMINS + MINERALS [Concomitant]
  2. ZONEGRAN [Suspect]
     Active Substance: ZONISAMIDE
     Indication: SEIZURE
     Dosage: 25 MG CAPSULE, 25MG 2 CAPSULES, 1 CAPSULE AM 1 CAPSULE PM, BY MOUTH
     Route: 048
     Dates: start: 20140625

REACTIONS (7)
  - Tinnitus [None]
  - Skin fissures [None]
  - Seizure [None]
  - Stress [None]
  - Sleep disorder [None]
  - Irritability [None]
  - Fatigue [None]

NARRATIVE: CASE EVENT DATE: 20140703
